FAERS Safety Report 18643073 (Version 5)
Quarter: 2021Q3

REPORT INFORMATION
  Report Type: Spontaneous
  Country: US (occurrence: US)
  Receive Date: 20201221
  Receipt Date: 20210708
  Transmission Date: 20211014
  Serious: Yes (Hospitalization)
  Sender: FDA-Public Use
  Company Number: US-PFIZER INC-2020428487

PATIENT
  Age: 46 Year
  Sex: Female

DRUGS (1)
  1. IBRANCE [Suspect]
     Active Substance: PALBOCICLIB
     Indication: BREAST CANCER FEMALE
     Dosage: 125 MG

REACTIONS (8)
  - White blood cell count decreased [Unknown]
  - Cardiac disorder [Unknown]
  - Neoplasm progression [Not Recovered/Not Resolved]
  - Mental disorder [Unknown]
  - Developmental delay [Unknown]
  - Jugular vein thrombosis [Unknown]
  - Off label use [Unknown]
  - Renal disorder [Unknown]
